FAERS Safety Report 7676734-2 (Version None)
Quarter: 2011Q3

REPORT INFORMATION
  Report Type: 
  Country: None (occurrence: None)
  Receive Date: 20110811
  Receipt Date: 20110802
  Transmission Date: 20111222
  Serious: Yes (Death)
  Sender: FDA-Public Use
  Company Number: JP-B.I. PHARMACEUTICALS,INC./RIDGEFIELD-2011-DE-04313GD

PATIENT
  Age: 54 Year
  Sex: Female

DRUGS (2)
  1. TIOTROPIUM [Suspect]
     Indication: DIFFUSE PANBRONCHIOLITIS
     Dates: start: 20080901
  2. SALMETEROL [Concomitant]
     Indication: DIFFUSE PANBRONCHIOLITIS
     Dates: start: 20080901

REACTIONS (3)
  - PNEUMONIA [None]
  - HYPOXIA [None]
  - DIFFUSE PANBRONCHIOLITIS [None]
